FAERS Safety Report 4347453-5 (Version None)
Quarter: 2004Q2

REPORT INFORMATION
  Report Type: 
  Country: None (occurrence: None)
  Receive Date: 20040426
  Receipt Date: 20040426
  Transmission Date: 20050107
  Serious: Yes (Disabling, Other)
  Sender: FDA-Public Use
  Company Number: None

PATIENT
  Sex: Female
  Weight: 81.6475 kg

DRUGS (5)
  1. PAXIL CR [Suspect]
     Indication: PANIC ATTACK
     Dosage: 75 MG EVERYDAY ORAL
     Route: 048
     Dates: start: 20010101, end: 20040423
  2. PAXIL CR [Suspect]
     Indication: SOCIAL PHOBIA
     Dosage: 75 MG EVERYDAY ORAL
     Route: 048
     Dates: start: 20010101, end: 20040423
  3. KLONIPIN [Concomitant]
  4. ATIVAN [Concomitant]
  5. AMBIEN [Concomitant]

REACTIONS (6)
  - DEPRESSION [None]
  - DRUG INEFFECTIVE [None]
  - DRUG WITHDRAWAL SYNDROME [None]
  - SELF MUTILATION [None]
  - SUICIDAL IDEATION [None]
  - TREATMENT NONCOMPLIANCE [None]
